FAERS Safety Report 10302277 (Version 1)
Quarter: 2014Q3

REPORT INFORMATION
  Report Type: Spontaneous
  Country: US (occurrence: None)
  Receive Date: 20140710
  Receipt Date: 20140710
  Transmission Date: 20150326
  Serious: Yes (Disabling)
  Sender: FDA-Public Use
  Company Number: None

PATIENT
  Age: 53 Year
  Sex: Female

DRUGS (18)
  1. ENBREL [Concomitant]
     Active Substance: ETANERCEPT
  2. FOLIC ACID. [Concomitant]
     Active Substance: FOLIC ACID
  3. FUROSEMIDE. [Concomitant]
     Active Substance: FUROSEMIDE
  4. NAPROXEN SODIUM. [Concomitant]
     Active Substance: NAPROXEN SODIUM
  5. BISOPROLOL HCTZ [Concomitant]
  6. METHYLPREDNISONE [Suspect]
     Active Substance: METHYLPREDNISOLONE
     Indication: HYPERSENSITIVITY
     Dosage: 4 MG TABLET PACK 21/40/60 4 TABLETS TWICE DAILY BY MOUTH
     Route: 048
     Dates: start: 20120318, end: 20120430
  7. FOLIC ACID. [Concomitant]
     Active Substance: FOLIC ACID
  8. ENBREL [Concomitant]
     Active Substance: ETANERCEPT
  9. METHYLPREDNISONE [Suspect]
     Active Substance: METHYLPREDNISOLONE
     Indication: DERMATITIS CONTACT
     Dosage: 4 MG TABLET PACK 21/40/60 4 TABLETS TWICE DAILY BY MOUTH
     Route: 048
     Dates: start: 20120318, end: 20120430
  10. HYDROCODON-ACETAMINOPH [Concomitant]
  11. BUTALBITAL-ASA [Concomitant]
  12. POTASSIUM CLER [Concomitant]
  13. METHOTREXATE [Concomitant]
     Active Substance: METHOTREXATE
  14. MAGNESUM+MILK THISTLE [Concomitant]
  15. SUMATRIPTAN [Concomitant]
     Active Substance: SUMATRIPTAN
  16. FLUOXETINE HCL [Concomitant]
     Active Substance: FLUOXETINE HYDROCHLORIDE
  17. HYDROXYCHLOROQUINE [Concomitant]
     Active Substance: HYDROXYCHLOROQUINE
  18. MELOXICAM. [Concomitant]
     Active Substance: MELOXICAM

REACTIONS (7)
  - Pain [None]
  - Muscle spasms [None]
  - Pain in extremity [None]
  - Depression [None]
  - Rash [None]
  - Arthralgia [None]
  - Mood swings [None]

NARRATIVE: CASE EVENT DATE: 20120318
